FAERS Safety Report 5814626-1 (Version None)
Quarter: 2008Q3

REPORT INFORMATION
  Report Type: 
  Country: None (occurrence: None)
  Receive Date: 20080718
  Receipt Date: 20070906
  Transmission Date: 20090109
  Serious: No
  Sender: FDA-Public Use
  Company Number: US-KINGPHARMUSA00001-K200701148

PATIENT

DRUGS (3)
  1. LEVOXYL [Suspect]
     Indication: THYROIDECTOMY
     Dosage: 150 MCG, QD
     Route: 048
     Dates: start: 20060101, end: 20070101
  2. LEVOXYL [Suspect]
     Dosage: 137 MCG, SUNDAYS, TUESDAYS, THURSDAYS, + SATURDAYS
     Route: 048
     Dates: start: 20070101
  3. LEVOXYL [Suspect]
     Dosage: 125 MCG, MONDAYS, WEDNESDAYS, + FRIDAYS
     Route: 048
     Dates: start: 20070101

REACTIONS (5)
  - HYPERHIDROSIS [None]
  - HYPERTHYROIDISM [None]
  - PALPITATIONS [None]
  - TREMOR [None]
  - WEIGHT DECREASED [None]
